FAERS Safety Report 5665205-0 (Version None)
Quarter: 2008Q1

REPORT INFORMATION
  Report Type: 
  Country: None (occurrence: None)
  Receive Date: 20080314
  Receipt Date: 20060227
  Transmission Date: 20080703
  Serious: No
  Sender: FDA-Public Use
  Company Number: US-ABBOTT-06P-163-0326982-00

PATIENT
  Sex: Female

DRUGS (1)
  1. HUMIRA [Suspect]
     Indication: DRUG USE FOR UNKNOWN INDICATION
     Route: 058

REACTIONS (4)
  - EAR DISCOMFORT [None]
  - EYE IRRITATION [None]
  - OEDEMA PERIPHERAL [None]
  - SINUSITIS [None]
